FAERS Safety Report 7391544-1 (Version None)
Quarter: 2011Q2

REPORT INFORMATION
  Report Type: 
  Country: None (occurrence: None)
  Receive Date: 20110404
  Receipt Date: 20090105
  Transmission Date: 20111010
  Serious: Yes (Hospitalization, Other)
  Sender: FDA-Public Use
  Company Number: US-BAYER-200841773NA

PATIENT
  Sex: Female
  Weight: 77.098 kg

DRUGS (13)
  1. TRASYLOL [Suspect]
     Indication: CARDIOPULMONARY BYPASS
     Dosage: LOADING DOSE, 200ML OVER 30 MINUTES THEN 50ML / HR
     Dates: start: 20050222, end: 20050222
  2. NITROGLYCERIN [Concomitant]
     Dosage: UNK
     Route: 042
     Dates: start: 20050222
  3. TRASYLOL [Suspect]
     Indication: CORONARY ARTERY BYPASS
     Dosage: 1 ML, TEST DOSE
     Route: 042
     Dates: start: 20050222, end: 20050222
  4. DOPAMINE HCL [Concomitant]
     Dosage: UNK
     Route: 042
     Dates: start: 20050222
  5. TRASYLOL [Suspect]
     Indication: CARDIAC ARREST
  6. PROTAMINE SULFATE [Concomitant]
     Dosage: 300 MG, UNK
     Route: 042
     Dates: start: 20050222
  7. AMIODARONE HCL [Concomitant]
     Dosage: UNK
     Route: 042
     Dates: start: 20050222
  8. SKELAXIN [Concomitant]
     Dosage: 800 MG, BID
     Route: 048
  9. ACETYLSALICYLIC ACID SRT [Concomitant]
     Dosage: 81 MG, QD
     Dates: end: 20050214
  10. LIPITOR [Concomitant]
     Dosage: 10 MG, QD
     Route: 048
  11. TRASYLOL [Suspect]
     Indication: AORTIC VALVE REPLACEMENT
  12. PREVACID [Concomitant]
     Dosage: 30 MG, QD
  13. TYLENOL REGULAR [Concomitant]
     Dosage: UNK UNK, PRN
     Route: 048

REACTIONS (10)
  - UNEVALUABLE EVENT [None]
  - RENAL FAILURE ACUTE [None]
  - EMOTIONAL DISTRESS [None]
  - PAIN [None]
  - RENAL FAILURE [None]
  - RENAL INJURY [None]
  - FEAR [None]
  - RENAL IMPAIRMENT [None]
  - STRESS [None]
  - ANXIETY [None]
